FAERS Safety Report 4856986-4 (Version None)
Quarter: 2005Q4

REPORT INFORMATION
  Report Type: 
  Country: None (occurrence: None)
  Receive Date: 20051219
  Receipt Date: 20041207
  Transmission Date: 20060501
  Serious: No
  Sender: FDA-Public Use
  Company Number: US-GLAXOSMITHKLINE-A0536309A

PATIENT
  Age: 42 Year

DRUGS (2)
  1. EQUATE NTS 21MG [Suspect]
     Dates: start: 20041128
  2. PROZAC [Concomitant]

REACTIONS (2)
  - PAIN IN EXTREMITY [None]
  - STOMACH DISCOMFORT [None]
